FAERS Safety Report 4444345-8 (Version None)
Quarter: 2004Q3

REPORT INFORMATION
  Report Type: 
  Country: None (occurrence: None)
  Receive Date: 20040813
  Receipt Date: 20040630
  Transmission Date: 20050211
  Serious: Yes (Hospitalization)
  Sender: FDA-Public Use
  Company Number: 2004219218US

PATIENT
  Age: 83 Year
  Sex: Female

DRUGS (1)
  1. XANAX XR [Suspect]
     Dosage: 1 MG, QD,

REACTIONS (1)
  - SEDATION [None]
